FAERS Safety Report 4500696-X (Version None)
Quarter: 2004Q4

REPORT INFORMATION
  Report Type: 
  Country: None (occurrence: None)
  Receive Date: 20041109
  Receipt Date: 20041027
  Transmission Date: 20050328
  Serious: Yes (Hospitalization, Other)
  Sender: FDA-Public Use
  Company Number: US_0410107524

PATIENT
  Age: 69 Year
  Sex: Female
  Weight: 72 kg

DRUGS (6)
  1. DULOXETINE HYDROCHLORIDE [Suspect]
     Indication: MAJOR DEPRESSION
     Dosage: 60 MG /1 DAY
     Dates: start: 20040823, end: 20041020
  2. BENADRYL [Concomitant]
  3. DETROL LA [Concomitant]
  4. DIOVAN HCT [Concomitant]
  5. ACTONEL [Concomitant]
  6. CLINORIL [Concomitant]

REACTIONS (3)
  - AMNESIA [None]
  - DIZZINESS [None]
  - SYNCOPE [None]
